FAERS Safety Report 4590730-3 (Version None)
Quarter: 2005Q1

REPORT INFORMATION
  Report Type: 
  Country: None (occurrence: None)
  Receive Date: 20050224
  Receipt Date: 20041221
  Transmission Date: 20050727
  Serious: Yes (Life-Threatening)
  Sender: FDA-Public Use
  Company Number: US-MERCK-0412USA02621

PATIENT
  Age: 47 Year
  Sex: Female

DRUGS (8)
  1. VIOXX [Suspect]
     Indication: PAIN
     Route: 048
     Dates: end: 20030101
  2. VIOXX [Suspect]
     Indication: TEMPOROMANDIBULAR JOINT SYNDROME
     Route: 048
     Dates: start: 20010101
  3. VIOXX [Suspect]
     Route: 048
  4. VIOXX [Suspect]
     Route: 048
     Dates: start: 20010101
  5. VIOXX [Suspect]
     Route: 048
  6. VIOXX [Suspect]
     Route: 048
     Dates: end: 20030101
  7. NORVASC [Concomitant]
     Route: 065
  8. LISINOPRIL [Concomitant]
     Route: 048

REACTIONS (3)
  - CARDIAC FLUTTER [None]
  - DIARRHOEA [None]
  - PALPITATIONS [None]
